FAERS Safety Report 25816996 (Version 2)
Quarter: 2025Q4

REPORT INFORMATION
  Report Type: Spontaneous
  Country: US (occurrence: US)
  Receive Date: 20250918
  Receipt Date: 20251104
  Transmission Date: 20260118
  Serious: No
  Sender: ABBVIE
  Company Number: US-ABBVIE-6458899

PATIENT
  Sex: Female

DRUGS (1)
  1. BOTOX [Suspect]
     Active Substance: ONABOTULINUMTOXINA
     Indication: Torticollis
     Dosage: TIME INTERVAL: AS NECESSARY: 155 UNIT
     Route: 065

REACTIONS (3)
  - Swelling of eyelid [Recovered/Resolved]
  - Eyelid ptosis [Recovered/Resolved]
  - Eye swelling [Recovered/Resolved]
